FAERS Safety Report 13685073 (Version 4)
Quarter: 2017Q3

REPORT INFORMATION
  Report Type: Spontaneous
  Country: FI (occurrence: FI)
  Receive Date: 20170623
  Receipt Date: 20170718
  Transmission Date: 20171127
  Serious: Yes (Hospitalization)
  Sender: FDA-Public Use
  Company Number: FI-UCBSA-2017024265

PATIENT

DRUGS (2)
  1. BRIVIACT [Suspect]
     Active Substance: BRIVARACETAM
     Indication: OFF LABEL USE
  2. BRIVIACT [Suspect]
     Active Substance: BRIVARACETAM
     Indication: MYOCLONUS
     Dosage: 50 MG, 2X/DAY (BID)

REACTIONS (2)
  - Hospitalisation [Unknown]
  - Off label use [Unknown]
